FAERS Safety Report 25193701 (Version 1)
Quarter: 2025Q2

REPORT INFORMATION
  Report Type: Spontaneous
  Country: CN (occurrence: CN)
  Receive Date: 20250414
  Receipt Date: 20250414
  Transmission Date: 20250717
  Serious: Yes (Hospitalization)
  Sender: ABBVIE
  Company Number: CN-ABBVIE-6217971

PATIENT
  Age: 76 Year
  Sex: Male
  Weight: 51 kg

DRUGS (2)
  1. VENCLEXTA [Suspect]
     Active Substance: VENETOCLAX
     Indication: Neoplasm malignant
     Dosage: 100 MILLIGRAM
     Route: 048
     Dates: start: 20250220, end: 20250305
  2. AZACITIDINE [Suspect]
     Active Substance: AZACITIDINE
     Indication: Neoplasm malignant
     Dosage: 100 MILLIGRAM
     Route: 058
     Dates: start: 20250220, end: 20250226

REACTIONS (1)
  - Myelosuppression [Unknown]

NARRATIVE: CASE EVENT DATE: 20250326
